FAERS Safety Report 5047958-8 (Version None)
Quarter: 2006Q3

REPORT INFORMATION
  Report Type: 
  Country: None (occurrence: None)
  Receive Date: 20060710
  Receipt Date: 20060710
  Transmission Date: 20061208
  Serious: Yes (Hospitalization)
  Sender: FDA-Public Use
  Company Number: None

PATIENT
  Sex: Male
  Weight: 55 kg

DRUGS (11)
  1. LORAZEPAM [Suspect]
     Indication: ANXIETY
     Dosage: 0.5 MG HS PO
     Route: 048
  2. LORAZEPAM [Suspect]
     Indication: SLEEP DISORDER
     Dosage: 0.5 MG HS PO
     Route: 048
  3. AMITRIPTYLINE HCL [Suspect]
     Indication: PAIN
     Dosage: 50 MG HS PO
     Route: 048
  4. ATENOLOL [Concomitant]
  5. ATROPINE 0.025 /DIPHENOXYLATE [Concomitant]
  6. FIKUC ACUD [Concomitant]
  7. LASIX [Concomitant]
  8. LISINOPRIL [Concomitant]
  9. PRILOSEC [Concomitant]
  10. HYDROCODONE 7.5 /ACETAMINOPHEN [Concomitant]
  11. LORAZEPAM [Concomitant]

REACTIONS (17)
  - ALCOHOLISM [None]
  - ANXIETY DISORDER [None]
  - CEREBROVASCULAR ACCIDENT [None]
  - FALL [None]
  - GAIT DISTURBANCE [None]
  - GASTROOESOPHAGEAL REFLUX DISEASE [None]
  - HYPERTENSION [None]
  - INTERMITTENT CLAUDICATION [None]
  - LOSS OF CONSCIOUSNESS [None]
  - OSTEOARTHRITIS [None]
  - PAIN [None]
  - PRESBYACUSIS [None]
  - PRESBYOPIA [None]
  - RENAL FAILURE [None]
  - RIB FRACTURE [None]
  - TOBACCO USER [None]
  - WALKING AID USER [None]
